FAERS Safety Report 6307581-1 (Version None)
Quarter: 2009Q3

REPORT INFORMATION
  Report Type: 
  Country: None (occurrence: None)
  Receive Date: 20090813
  Receipt Date: 20090804
  Transmission Date: 20100115
  Serious: Yes (Other)
  Sender: FDA-Public Use
  Company Number: US-ELI_LILLY_AND_COMPANY-US200908000963

PATIENT
  Age: 33 Year
  Sex: Male

DRUGS (6)
  1. FORTEO [Suspect]
     Indication: OSTEOPOROSIS
     Dates: start: 20090701
  2. PHENOBARBITAL [Concomitant]
  3. VALPROIC ACID [Concomitant]
  4. CARBAMAZEPINE [Concomitant]
  5. BACLOFEN [Concomitant]
  6. FLOMAX [Concomitant]

REACTIONS (6)
  - BREATH HOLDING [None]
  - CONVULSION [None]
  - GRAND MAL CONVULSION [None]
  - MUSCULOSKELETAL STIFFNESS [None]
  - PALLOR [None]
  - VOMITING [None]
